FAERS Safety Report 23490261 (Version 1)
Quarter: 2024Q1

REPORT INFORMATION
  Report Type: Spontaneous
  Country: US (occurrence: None)
  Receive Date: 20240206
  Receipt Date: 20240206
  Transmission Date: 20240409
  Serious: No
  Sender: FDA-Public Use
  Company Number: US-ROCHE-3409523

PATIENT
  Sex: Male
  Weight: 115.77 kg

DRUGS (1)
  1. XOLAIR [Suspect]
     Active Substance: OMALIZUMAB
     Indication: Product used for unknown indication
     Dosage: THE PATIENT BEGAN XOLAIR ^EARLY THIS YEAR^, CLARIFIED AS -JAN-2023 OR -FEB-2023 .
     Route: 065

REACTIONS (1)
  - Urticaria [Unknown]
